FAERS Safety Report 17995368 (Version 1)
Quarter: 2020Q3

REPORT INFORMATION
  Report Type: Spontaneous
  Country: US (occurrence: US)
  Receive Date: 20200708
  Receipt Date: 20200708
  Transmission Date: 20201103
  Serious: No
  Sender: FDA-Public Use
  Company Number: None

PATIENT
  Sex: Male

DRUGS (3)
  1. GLEOSTINE [Suspect]
     Active Substance: LOMUSTINE
     Indication: BRAIN NEOPLASM MALIGNANT
     Dosage: ?          OTHER FREQUENCY:ONCE EVERY 56 DAYS;?
     Route: 048
     Dates: start: 20191116
  2. GLEOSTINE [Suspect]
     Active Substance: LOMUSTINE
     Indication: BRAIN NEOPLASM MALIGNANT
     Dosage: ?          OTHER FREQUENCY:ONCE EVERY 56 DAYS;?
     Route: 048
     Dates: start: 20191116
  3. LEVEITIRACTEA [Concomitant]

REACTIONS (2)
  - Red blood cell count decreased [None]
  - Platelet count decreased [None]
